FAERS Safety Report 6240303-1 (Version None)
Quarter: 2009Q2

REPORT INFORMATION
  Report Type: 
  Country: None (occurrence: None)
  Receive Date: 20090623
  Receipt Date: 20080626
  Transmission Date: 20091009
  Serious: No
  Sender: FDA-Public Use
  Company Number: US-ASTRAZENECA-2008UW12931

PATIENT
  Age: 36 Year
  Sex: Female

DRUGS (3)
  1. PULMICORT FLEXHALER [Suspect]
     Indication: ASTHMA
     Route: 055
     Dates: start: 20080626
  2. TYLENOL (CAPLET) [Concomitant]
  3. BENADRYL [Concomitant]

REACTIONS (2)
  - DRUG EXPOSURE DURING PREGNANCY [None]
  - FEELING ABNORMAL [None]
